FAERS Safety Report 8535739 (Version 3)
Quarter: 2012Q4

REPORT INFORMATION
  Report Type: 
  Country: AU (occurrence: AU)
  Receive Date: 20120430
  Receipt Date: 20120914
  Transmission Date: 20130627
  Serious: Yes (Other)
  Sender: FDA-Public Use
  Company Number: PHHY2012AU035493

PATIENT
  Sex: Male
  Weight: 94 kg

DRUGS (5)
  1. SANDOSTATIN LAR [Suspect]
     Indication: CARCINOID SYNDROME
     Dosage: 30 mg, UNK
     Route: 030
     Dates: start: 20120301
  2. SANDOSTATIN LAR [Suspect]
     Dosage: 30 mg, UNK
     Route: 030
     Dates: start: 20120426
  3. DIABEX [Concomitant]
     Indication: DIABETES MELLITUS
     Dosage: 1 g, daily
     Route: 048
     Dates: start: 201201
  4. MICARDISPLUS [Concomitant]
     Indication: HYPERTENSION
     Dosage: 80/12.5mg, mane
     Route: 048
     Dates: start: 201201
  5. KETOCONAZOLE [Concomitant]
     Dosage: 200 mg, mane
     Route: 048

REACTIONS (5)
  - Asthenia [Recovered/Resolved]
  - Fatigue [Recovered/Resolved]
  - Feeling abnormal [Recovered/Resolved]
  - Malaise [Recovered/Resolved]
  - Nausea [Recovered/Resolved]
